FAERS Safety Report 8850365 (Version 1)
Quarter: 2012Q4

REPORT INFORMATION
  Report Type: 
  Country: US (occurrence: US)
  Receive Date: 20121019
  Receipt Date: 20121019
  Transmission Date: 20130627
  Serious: No
  Sender: FDA-Public Use
  Company Number: US-VERTEX PHARMACEUTICAL INC.-2012-022859

PATIENT
  Age: 57 Year
  Sex: Male

DRUGS (3)
  1. INCIVEK [Suspect]
     Indication: HEPATITIS C
     Dosage: 750 mg, tid
     Route: 048
     Dates: start: 20120917
  2. COPEGUS [Suspect]
     Indication: HEPATITIS C
     Dosage: 400 mg, bid
     Dates: start: 20120917
  3. PEGASYS [Suspect]
     Indication: HEPATITIS C
     Dosage: UNK
     Dates: start: 20120917

REACTIONS (1)
  - White blood cell count decreased [Not Recovered/Not Resolved]
